FAERS Safety Report 8771959 (Version 2)
Quarter: 2012Q4

REPORT INFORMATION
  Report Type: 
  Country: IN (occurrence: IN)
  Receive Date: 20120905
  Receipt Date: 20120917
  Transmission Date: 20130627
  Serious: Yes (Hospitalization, Disabling)
  Sender: FDA-Public Use
  Company Number: PHHY2012IN076965

PATIENT
  Age: 20 Year
  Sex: Male

DRUGS (3)
  1. ACLASTA [Suspect]
     Indication: OSTEOPOROSIS
     Dosage: 5 mg / 100 ml
     Route: 042
     Dates: start: 20110922
  2. EVION [Concomitant]
     Indication: VITAMIN E DEFICIENCY
  3. AMITRIPTYLINE [Concomitant]
     Indication: ANTIDEPRESSANT THERAPY

REACTIONS (3)
  - Hypercalcaemia [Not Recovered/Not Resolved]
  - Drug ineffective [Not Recovered/Not Resolved]
  - Product quality issue [None]
